FAERS Safety Report 12806429 (Version 2)
Quarter: 2016Q4

REPORT INFORMATION
  Report Type: Spontaneous
  Country: IT (occurrence: IT)
  Receive Date: 20161004
  Receipt Date: 20161017
  Transmission Date: 20170207
  Serious: Yes (Death, Other)
  Sender: FDA-Public Use
  Company Number: IT-ALLERGAN-1670640US

PATIENT
  Age: 40 Year
  Sex: Male

DRUGS (4)
  1. BUTANE [Interacting]
     Active Substance: BUTANE
     Indication: PRODUCT USED FOR UNKNOWN INDICATION
     Dosage: UNK
  2. CITALOPRAM HYDROBROMIDE UNK [Suspect]
     Active Substance: CITALOPRAM HYDROBROMIDE
     Indication: MENTAL DISORDER
     Dosage: UNK
  3. PROPANE [Interacting]
     Active Substance: PROPANE
     Indication: PRODUCT USED FOR UNKNOWN INDICATION
     Dosage: UNK
  4. CHLORPROMAZINE. [Interacting]
     Active Substance: CHLORPROMAZINE
     Indication: MENTAL DISORDER
     Dosage: UNK

REACTIONS (6)
  - Drug interaction [Fatal]
  - Long QT syndrome [Not Recovered/Not Resolved]
  - Torsade de pointes [Not Recovered/Not Resolved]
  - Arrhythmia [Fatal]
  - Pulmonary oedema [Fatal]
  - Gas poisoning [Fatal]
